FAERS Safety Report 10833459 (Version 1)
Quarter: 2015Q1

REPORT INFORMATION
  Report Type: Spontaneous
  Country: US (occurrence: US)
  Receive Date: 20150219
  Receipt Date: 20150219
  Transmission Date: 20150721
  Serious: Yes (Other)
  Sender: FDA-Public Use
  Company Number: US-BAYER-2015-024680

PATIENT
  Age: 29 Year
  Sex: Female
  Weight: 107.94 kg

DRUGS (1)
  1. ALKA-SELTZER PLUS NIGHT SEVERE COLD AND FLU [Suspect]
     Active Substance: ACETAMINOPHEN\DEXTROMETHORPHAN HYDROBROMIDE\DOXYLAMINE SUCCINATE\PHENYLEPHRINE
     Indication: NASOPHARYNGITIS
     Dosage: 1 DOSE, ONCE
     Route: 048
     Dates: start: 20150215, end: 20150215

REACTIONS (1)
  - Hallucination [Recovered/Resolved]

NARRATIVE: CASE EVENT DATE: 20150215
